FAERS Safety Report 10038966 (Version 1)
Quarter: 2014Q1

REPORT INFORMATION
  Report Type: Spontaneous
  Country: US (occurrence: None)
  Receive Date: 20140306
  Receipt Date: 20140306
  Transmission Date: 20141002
  Serious: Yes (Hospitalization, Other)
  Sender: FDA-Public Use
  Company Number: 163-21880-13061390

PATIENT
  Age: 52 Year
  Sex: Female
  Weight: 51.71 kg

DRUGS (14)
  1. REVLIMIDE(LENALIDOMIDE)(10 MILLIGRAM, CAPSULES) [Suspect]
     Indication: PLASMA CELL MYELOMA
     Route: 048
     Dates: start: 20100718, end: 2012
  2. METHADONE(METHADONE) [Suspect]
     Indication: PAIN
  3. SOMA (CARISOPRODOL) [Concomitant]
  4. POTASSIUM CL (POTASSIUM CHLORIDE) [Concomitant]
  5. CALCIUM(CALCIUM) [Concomitant]
  6. COLACE(DOCUSATE SODIUM) [Concomitant]
  7. XANAX(ALPRAZOLAM) [Concomitant]
  8. REMERON(MIRTAZAPINE) [Concomitant]
  9. VALACYCLOVIR(VALACICLOVIR HYDROCHLORIDE) [Concomitant]
  10. ASPIRIN(ACETYLSALICYLIC ACID) [Concomitant]
  11. LAMICTAL(LAMOTRIGINE) [Concomitant]
  12. LEVOTHYROXINE(LEVOTHYROXINE) (LEVOTHYROXINE SODIUM) [Concomitant]
  13. MORPHINE SULFATE (MORPHINE SULFATE) INJECTION [Concomitant]
  14. ZOMETA (ZOEDRONIC ACID) [Concomitant]

REACTIONS (1)
  - Chest pain [None]
